FAERS Safety Report 10406013 (Version 1)
Quarter: 2014Q3

REPORT INFORMATION
  Report Type: Spontaneous
  Country: BR (occurrence: BR)
  Receive Date: 20140825
  Receipt Date: 20140825
  Transmission Date: 20150326
  Serious: Yes (Other)
  Sender: FDA-Public Use
  Company Number: BR-ELI_LILLY_AND_COMPANY-BR201408004095

PATIENT
  Sex: Female
  Weight: 69 kg

DRUGS (5)
  1. HUMULIN N [Suspect]
     Active Substance: INSULIN HUMAN
     Dosage: 15 IU, EACH EVENING
     Route: 058
     Dates: start: 1992
  2. BIOHULIN REGULAR [Concomitant]
     Indication: DIABETES MELLITUS
     Dosage: 10 IU, EACH MORNING
     Route: 065
     Dates: start: 2001
  3. HUMULIN N [Suspect]
     Active Substance: INSULIN HUMAN
     Indication: TYPE 1 DIABETES MELLITUS
     Dosage: 42 IU, EACH MORNING
     Route: 058
     Dates: start: 1992
  4. METFORMIN [Concomitant]
     Active Substance: METFORMIN HYDROCHLORIDE
     Dosage: UNK, UNKNOWN
  5. BIOHULIN REGULAR [Concomitant]
     Dosage: 10 IU, EACH EVENING
     Route: 065
     Dates: start: 2001

REACTIONS (7)
  - Diabetic retinopathy [Not Recovered/Not Resolved]
  - Blood glucose increased [Recovered/Resolved]
  - Eye haemorrhage [Unknown]
  - Glycosylated haemoglobin increased [Unknown]
  - Laboratory test abnormal [Unknown]
  - Drug effect delayed [Recovered/Resolved]
  - Pulpitis dental [Recovered/Resolved]

NARRATIVE: CASE EVENT DATE: 2009
